FAERS Safety Report 13346478 (Version 2)
Quarter: 2017Q2

REPORT INFORMATION
  Report Type: Spontaneous
  Country: US (occurrence: US)
  Receive Date: 20170317
  Receipt Date: 20170404
  Transmission Date: 20170830
  Serious: Yes (Hospitalization)
  Sender: FDA-Public Use
  Company Number: US-PRAGMA PHARMACEUTICALS, LLC-2017PRG00032

PATIENT
  Sex: Female
  Weight: 73.16 kg

DRUGS (5)
  1. LEVOTHYROXINE. [Concomitant]
     Active Substance: LEVOTHYROXINE
  2. CEPHALEXIN. [Suspect]
     Active Substance: CEPHALEXIN
     Indication: INFECTION
     Dosage: 500 MG, 2X/DAY
     Route: 048
     Dates: start: 200611, end: 200612
  3. UNSPECIFIED VITAMINS [Concomitant]
     Active Substance: VITAMINS
  4. UNSPECIFIED MINERALS [Concomitant]
  5. DILTIAZEM. [Concomitant]
     Active Substance: DILTIAZEM

REACTIONS (9)
  - Gastrointestinal necrosis [Unknown]
  - Pain in extremity [Unknown]
  - Colon injury [Not Recovered/Not Resolved]
  - Body height decreased [Not Recovered/Not Resolved]
  - Overdose [Recovered/Resolved]
  - Ligament sprain [Not Recovered/Not Resolved]
  - Limb injury [None]
  - Gastrointestinal haemorrhage [Recovered/Resolved]
  - Necrosis of artery [Unknown]

NARRATIVE: CASE EVENT DATE: 2006
